FAERS Safety Report 4618557-4 (Version None)
Quarter: 2005Q1

REPORT INFORMATION
  Report Type: 
  Country: None (occurrence: None)
  Receive Date: 20050324
  Receipt Date: 20050309
  Transmission Date: 20050727
  Serious: Yes (Death)
  Sender: FDA-Public Use
  Company Number: USA050392805

PATIENT
  Age: 81 Year
  Sex: Female

DRUGS (6)
  1. EVISTA [Suspect]
     Indication: OSTEOPOROSIS
     Dates: start: 20040101
  2. LANOXIN (DIGOXIN-SANDOZ) [Concomitant]
  3. POTASSIUM CHLORIDE [Concomitant]
  4. ZANTAC [Concomitant]
  5. XANAX (ALPRAZOLAM DUM) [Concomitant]
  6. LASIX [Concomitant]

REACTIONS (1)
  - CARDIAC FAILURE CONGESTIVE [None]
